FAERS Safety Report 16276868 (Version 1)
Quarter: 2019Q2

REPORT INFORMATION
  Report Type: Report from Study
  Country: CA (occurrence: CA)
  Receive Date: 20190506
  Receipt Date: 20190506
  Transmission Date: 20190711
  Serious: Yes (Other)
  Sender: FDA-Public Use
  Company Number: CA-PFIZER INC-2019188838

PATIENT
  Age: 71 Year
  Sex: Male

DRUGS (17)
  1. IBUPROFEN. [Suspect]
     Active Substance: IBUPROFEN
     Indication: PAIN
     Dosage: UNK
     Route: 065
  2. ADVAIR HFA [Concomitant]
     Active Substance: FLUTICASONE PROPIONATE\SALMETEROL XINAFOATE
     Dosage: UNK
     Route: 065
  3. SALBUTAMOL [Concomitant]
     Active Substance: ALBUTEROL
     Dosage: 2 DF, UNK
  4. XOLAIR [Suspect]
     Active Substance: OMALIZUMAB
     Dosage: UNK
     Route: 058
  5. ALVESCO [Concomitant]
     Active Substance: CICLESONIDE
     Dosage: 2 DF, 2X/DAY
     Route: 065
  6. SPIRIVA [Concomitant]
     Active Substance: TIOTROPIUM BROMIDE MONOHYDRATE
     Dosage: UNK
     Route: 065
  7. XOLAIR [Suspect]
     Active Substance: OMALIZUMAB
     Dosage: UNK
     Route: 058
  8. XOLAIR [Suspect]
     Active Substance: OMALIZUMAB
     Dosage: UNK
     Route: 058
  9. XOLAIR [Suspect]
     Active Substance: OMALIZUMAB
     Dosage: UNK
     Route: 058
  10. XOLAIR [Suspect]
     Active Substance: OMALIZUMAB
     Dosage: 225 MG, 1 EVERY 2 WEEK (S)
     Route: 058
  11. XOLAIR [Suspect]
     Active Substance: OMALIZUMAB
     Dosage: 225 MG, 1 EVERY 2 WEEK (S)
     Route: 058
  12. XOLAIR [Suspect]
     Active Substance: OMALIZUMAB
     Indication: ASTHMA
     Dosage: 225 MG, 1 EVERY 2 WEEK (S)
     Route: 058
  13. XOLAIR [Suspect]
     Active Substance: OMALIZUMAB
     Dosage: UNK
     Route: 058
  14. XOLAIR [Suspect]
     Active Substance: OMALIZUMAB
     Dosage: 225 MG, 1 EVERY 2 WEEK (S)
     Route: 058
  15. XOLAIR [Suspect]
     Active Substance: OMALIZUMAB
     Dosage: 225 MG, 1 EVERY 2 WEEK (S)
     Route: 058
  16. XOLAIR [Suspect]
     Active Substance: OMALIZUMAB
     Dosage: 225 MG, 1 EVERY 2 WEEK (S)
     Route: 058
  17. XOLAIR [Suspect]
     Active Substance: OMALIZUMAB
     Indication: ASTHMA
     Dosage: UNK
     Route: 058

REACTIONS (42)
  - Fatigue [Recovered/Resolved]
  - Irritability [Recovered/Resolved]
  - Paranasal sinus hypersecretion [Recovered/Resolved]
  - Back pain [Recovered/Resolved]
  - Weight decreased [Recovered/Resolved]
  - Hypersensitivity [Recovered/Resolved]
  - Aural polyp [Recovered/Resolved]
  - Cerumen impaction [Recovered/Resolved]
  - Cough [Recovered/Resolved]
  - Diabetes mellitus [Recovered/Resolved]
  - Malaise [Recovered/Resolved]
  - Oropharyngeal pain [Recovered/Resolved]
  - Productive cough [Recovered/Resolved]
  - Sciatica [Recovered/Resolved]
  - Pruritus [Recovered/Resolved]
  - Discomfort [Recovered/Resolved]
  - Ear pain [Recovered/Resolved]
  - Nasal congestion [Recovered/Resolved]
  - Nasal discharge discolouration [Recovered/Resolved]
  - Wheezing [Recovered/Resolved]
  - Blood pressure decreased [Recovered/Resolved]
  - Rhinorrhoea [Recovered/Resolved]
  - Spinal pain [Recovered/Resolved]
  - Tooth infection [Recovered/Resolved]
  - Blood glucose increased [Recovered/Resolved]
  - Sinus congestion [Recovered/Resolved]
  - Weight increased [Recovered/Resolved]
  - Dizziness [Recovered/Resolved]
  - Laryngitis [Recovered/Resolved]
  - Lung infection [Recovered/Resolved]
  - Nasal polyps [Recovered/Resolved]
  - Nasopharyngitis [Recovered/Resolved]
  - Sleep apnoea syndrome [Recovered/Resolved]
  - Somnolence [Recovered/Resolved]
  - Dyspnoea [Recovered/Resolved]
  - Rash macular [Recovered/Resolved]
  - Dyspnoea exertional [Recovered/Resolved]
  - Eye discharge [Recovered/Resolved]
  - Hypoacusis [Recovered/Resolved]
  - Increased upper airway secretion [Recovered/Resolved]
  - Intervertebral disc protrusion [Recovered/Resolved]
  - Overweight [Recovered/Resolved]
